FAERS Safety Report 4597602-9 (Version None)
Quarter: 2005Q1

REPORT INFORMATION
  Report Type: 
  Country: None (occurrence: None)
  Receive Date: 20050228
  Receipt Date: 20050228
  Transmission Date: 20050727
  Serious: Yes (Hospitalization)
  Sender: FDA-Public Use
  Company Number: None

PATIENT
  Sex: Male

DRUGS (8)
  1. LITHIUM CARBONATE CAP [Suspect]
     Indication: SCHIZOPHRENIA
     Dosage: 600 MG BID ORAL
     Route: 048
  2. OLANZAPINE [Concomitant]
  3. ARIPIPRAZOLE [Concomitant]
  4. DIPHENHYDRAMINE HCL [Concomitant]
  5. TERAZOSIN [Concomitant]
  6. ASPIRIN [Concomitant]
  7. POTASSIUM CHLORIDE [Concomitant]
  8. METFORMIN [Concomitant]

REACTIONS (1)
  - MENTAL STATUS CHANGES [None]
